FAERS Safety Report 7389527-0 (Version None)
Quarter: 2011Q2

REPORT INFORMATION
  Report Type: 
  Country: None (occurrence: None)
  Receive Date: 20110401
  Receipt Date: 20110321
  Transmission Date: 20111010
  Serious: Yes (Hospitalization)
  Sender: FDA-Public Use
  Company Number: PHHY2011FR23936

PATIENT
  Sex: Male

DRUGS (10)
  1. EUPRESSYL [Concomitant]
  2. POTASSIUM [Concomitant]
  3. LASIX [Concomitant]
     Indication: HYPERTENSION
  4. RASILEZ [Suspect]
     Indication: HYPERTENSION
     Dosage: 150 MG, QD
     Route: 048
     Dates: start: 20100101
  5. CLONIDINE HCL [Concomitant]
     Indication: HYPERTENSION
  6. RASILEZ [Suspect]
     Dosage: 300 MG, QD
     Route: 048
     Dates: start: 20100201
  7. LERCAN [Concomitant]
     Indication: HYPERTENSION
  8. INSPRA [Concomitant]
     Indication: HYPERTENSION
  9. KENZEN [Concomitant]
     Indication: HYPERTENSION
  10. CRESTOR [Concomitant]

REACTIONS (3)
  - SUFFOCATION FEELING [None]
  - CONDITION AGGRAVATED [None]
  - DYSPNOEA [None]
